FAERS Safety Report 15365125 (Version 3)
Quarter: 2018Q4

REPORT INFORMATION
  Report Type: Spontaneous
  Country: US (occurrence: US)
  Receive Date: 20180910
  Receipt Date: 20181126
  Transmission Date: 20190204
  Serious: No
  Sender: FDA-Public Use
  Company Number: US-ASTRAZENECA-2018SF09147

PATIENT
  Sex: Female

DRUGS (3)
  1. TUDORZA PRESSAIR [Suspect]
     Active Substance: ACLIDINIUM BROMIDE
     Indication: THYROIDECTOMY
     Route: 055
     Dates: start: 2018
  2. TUDORZA PRESSAIR [Suspect]
     Active Substance: ACLIDINIUM BROMIDE
     Indication: CHRONIC OBSTRUCTIVE PULMONARY DISEASE
     Route: 055
     Dates: start: 2018
  3. TUDORZA PRESSAIR [Suspect]
     Active Substance: ACLIDINIUM BROMIDE
     Indication: BRONCHIECTASIS
     Route: 055
     Dates: start: 2018

REACTIONS (5)
  - Device malfunction [Unknown]
  - Device issue [Unknown]
  - Nervousness [Unknown]
  - Wrong technique in product usage process [Unknown]
  - Drug ineffective [Unknown]
